APPROVED DRUG PRODUCT: BUTALBITAL, ACETAMINOPHEN AND CAFFEINE
Active Ingredient: ACETAMINOPHEN; BUTALBITAL; CAFFEINE
Strength: 325MG;50MG;40MG
Dosage Form/Route: TABLET;ORAL
Application: A040864 | Product #001 | TE Code: AA
Applicant: GRANULES PHARMACEUTICALS INC
Approved: Dec 1, 2008 | RLD: No | RS: No | Type: RX